FAERS Safety Report 17271240 (Version 6)
Quarter: 2020Q4

REPORT INFORMATION
  Report Type: Spontaneous
  Country: JP (occurrence: JP)
  Receive Date: 20200115
  Receipt Date: 20201201
  Transmission Date: 20210113
  Serious: Yes (Hospitalization)
  Sender: FDA-Public Use
  Company Number: JP-ROCHE-2493705

PATIENT
  Age: 51 Year
  Sex: Male
  Weight: 61 kg

DRUGS (25)
  1. REBAMIPIDE [Concomitant]
     Active Substance: REBAMIPIDE
  2. ROSUVASTATIN. [Concomitant]
     Active Substance: ROSUVASTATIN
  3. WYPAX [Suspect]
     Active Substance: LORAZEPAM
     Indication: PRODUCT USED FOR UNKNOWN INDICATION
     Route: 048
  4. SPIRONOLACTONE. [Suspect]
     Active Substance: SPIRONOLACTONE
     Indication: HYPERTENSION
     Route: 048
  5. NATRIX [Suspect]
     Active Substance: INDAPAMIDE
     Indication: HYPERTENSION
     Route: 048
  6. CARDENALIN [Suspect]
     Active Substance: DOXAZOSIN MESYLATE
     Indication: HYPERTENSION
     Route: 048
     Dates: start: 20191211
  7. TAKECAB [Concomitant]
     Active Substance: VONOPRAZAN FUMARATE
  8. HEPARINOID [Concomitant]
     Active Substance: CHONDROITIN SULFATE (BOVINE)
  9. DILTIAZEM. [Concomitant]
     Active Substance: DILTIAZEM
  10. NIFEDIPINE. [Suspect]
     Active Substance: NIFEDIPINE
     Indication: HYPERTENSION
     Route: 048
  11. LOVASTATIN. [Concomitant]
     Active Substance: LOVASTATIN
  12. MAGNESIUM OXIDE. [Concomitant]
     Active Substance: MAGNESIUM OXIDE
  13. ETHYL LOFLAZEPATE [Concomitant]
     Active Substance: ETHYL LOFLAZEPATE
  14. OLMETEC [Suspect]
     Active Substance: OLMESARTAN MEDOXOMIL
     Indication: HYPERTENSION
     Route: 048
     Dates: start: 20200716, end: 20200718
  15. CANDESARTAN. [Suspect]
     Active Substance: CANDESARTAN
     Indication: HYPERTENSION
     Route: 048
     Dates: start: 20191010, end: 20191114
  16. REBAMIPIDE [Concomitant]
     Active Substance: REBAMIPIDE
  17. LOVASTATIN. [Concomitant]
     Active Substance: LOVASTATIN
  18. ARTIST [Suspect]
     Active Substance: CARVEDILOL
     Route: 048
     Dates: start: 20200713, end: 20200718
  19. RIVOTRIL [Suspect]
     Active Substance: CLONAZEPAM
     Indication: PRODUCT USED FOR UNKNOWN INDICATION
     Route: 048
  20. VONOPRAZAN [Concomitant]
     Active Substance: VONOPRAZAN
  21. VONOPRAZAN FUMARATE [Concomitant]
     Active Substance: VONOPRAZAN FUMARATE
  22. ARTIST [Suspect]
     Active Substance: CARVEDILOL
     Indication: HYPERTENSION
     Route: 048
  23. MAGMITT [Concomitant]
     Active Substance: MAGNESIUM OXIDE
     Route: 048
  24. HEPARINOID [Concomitant]
     Active Substance: CHONDROITIN SULFATE (BOVINE)
  25. MECOBALAMIN [Concomitant]
     Active Substance: METHYLCOBALAMIN

REACTIONS (6)
  - Blood pressure decreased [Recovered/Resolved]
  - Blood pressure fluctuation [Recovering/Resolving]
  - Hypotension [Recovered/Resolved]
  - Facial paralysis [Recovered/Resolved]
  - Dizziness [Recovering/Resolving]
  - Loss of consciousness [Recovering/Resolving]

NARRATIVE: CASE EVENT DATE: 20191113
